FAERS Safety Report 9917505 (Version 2)
Quarter: 2014Q1

REPORT INFORMATION
  Report Type: Report from Study
  Country: NL (occurrence: NL)
  Receive Date: 20140221
  Receipt Date: 20140313
  Transmission Date: 20141002
  Serious: Yes (Other)
  Sender: FDA-Public Use
  Company Number: NL-CELGENEUS-114-21880-14021366

PATIENT
  Age: 69 Year
  Sex: Male
  Weight: 75 kg

DRUGS (14)
  1. REVLIMID [Suspect]
     Indication: PLASMA CELL MYELOMA
     Route: 048
     Dates: start: 20120515, end: 20120604
  2. MELPHALAN [Suspect]
     Indication: PLASMA CELL MYELOMA
     Route: 048
     Dates: start: 20120515, end: 20120518
  3. PREDNISONE [Suspect]
     Indication: PLASMA CELL MYELOMA
     Route: 048
     Dates: start: 20120515, end: 20120518
  4. TRAMADOL [Concomitant]
     Indication: PAIN
     Dosage: 3
     Route: 065
     Dates: start: 20120523, end: 20120616
  5. TRAMADOL [Concomitant]
     Dosage: 3
     Route: 065
     Dates: start: 20120621
  6. PLATELETS [Concomitant]
     Indication: HAEMOGLOBIN DECREASED
     Dosage: 3
     Route: 065
     Dates: start: 20120523
  7. PLATELETS [Concomitant]
     Dosage: 3
     Route: 065
     Dates: start: 20120621
  8. ALENDRONINEZR [Concomitant]
     Indication: PRODUCT USED FOR UNKNOWN INDICATION
     Route: 065
     Dates: end: 20120523
  9. DIAZEPAM [Concomitant]
     Indication: PRODUCT USED FOR UNKNOWN INDICATION
     Route: 065
     Dates: start: 20120612
  10. OXYCONTIN [Concomitant]
     Indication: PRODUCT USED FOR UNKNOWN INDICATION
     Dosage: 10 MILLIGRAM
     Route: 065
     Dates: start: 20120616, end: 20120621
  11. MORPHINE [Concomitant]
     Indication: PAIN
     Dosage: 3
     Route: 065
     Dates: start: 20120523, end: 20120616
  12. MORPHINE [Concomitant]
     Dosage: 3
     Route: 065
     Dates: start: 20120621
  13. PARACETAMOL [Concomitant]
     Indication: PAIN
     Route: 065
     Dates: start: 20120523
  14. BISPHOSPHONATE [Concomitant]
     Indication: PAIN
     Route: 065
     Dates: start: 20120523

REACTIONS (1)
  - Colon cancer [Recovered/Resolved]
